FAERS Safety Report 6575565-4 (Version None)
Quarter: 2010Q1

REPORT INFORMATION
  Report Type: 
  Country: None (occurrence: None)
  Receive Date: 20100209
  Receipt Date: 20100208
  Transmission Date: 20100710
  Serious: Yes (Other)
  Sender: FDA-Public Use
  Company Number: A0843419A

PATIENT
  Age: 46 Year
  Sex: Female
  Weight: 76.8 kg

DRUGS (1)
  1. ALLI [Suspect]
     Indication: WEIGHT LOSS DIET
     Dates: start: 20100131, end: 20100207

REACTIONS (3)
  - DRUG INEFFECTIVE [None]
  - HYPOTENSION [None]
  - LOSS OF CONSCIOUSNESS [None]
